FAERS Safety Report 5918616-X (Version None)
Quarter: 2008Q4

REPORT INFORMATION
  Report Type: 
  Country: None (occurrence: None)
  Receive Date: 20081015
  Receipt Date: 20081006
  Transmission Date: 20090506
  Serious: Yes (Other)
  Sender: FDA-Public Use
  Company Number: US-JNJFOC-20081001678

PATIENT
  Age: 81 Year
  Sex: Male
  Weight: 81.65 kg

DRUGS (3)
  1. IMODIUM A-D [Suspect]
     Route: 048
  2. IMODIUM A-D [Suspect]
     Indication: DIARRHOEA
     Route: 048
  3. ALLOPURINOL [Concomitant]
     Indication: GOUT

REACTIONS (2)
  - COORDINATION ABNORMAL [None]
  - DIZZINESS [None]
